FAERS Safety Report 20997928 (Version 3)
Quarter: 2022Q4

REPORT INFORMATION
  Report Type: Spontaneous
  Country: CA (occurrence: None)
  Receive Date: 20220623
  Receipt Date: 20221122
  Transmission Date: 20230113
  Serious: Yes (Other)
  Sender: FDA-Public Use
  Company Number: CA-PFIZER INC-202200843092

PATIENT
  Age: 45 Year
  Sex: Male
  Weight: 111 kg

DRUGS (2)
  1. METHOTREXATE [Suspect]
     Active Substance: METHOTREXATE
     Indication: Rheumatoid arthritis
     Dosage: 10 MG AM-15 MG PM AT BEDTIME, DISCONTINUED
     Route: 048
     Dates: start: 20130824, end: 20220614
  2. SULFASALAZINE [Suspect]
     Active Substance: SULFASALAZINE
     Indication: Rheumatoid arthritis
     Route: 065
     Dates: start: 20130723, end: 20220614

REACTIONS (4)
  - Arthritis [Unknown]
  - Drug ineffective [Unknown]
  - Product use issue [Recovered/Resolved]
  - Treatment noncompliance [Unknown]

NARRATIVE: CASE EVENT DATE: 20220613
